FAERS Safety Report 10284931 (Version 3)
Quarter: 2014Q3

REPORT INFORMATION
  Report Type: Report from Study
  Country: BR (occurrence: BR)
  Receive Date: 20140708
  Receipt Date: 20140716
  Transmission Date: 20150326
  Serious: Yes (Other)
  Sender: FDA-Public Use
  Company Number: PHHY2014BR052014

PATIENT
  Sex: Female
  Weight: 69 kg

DRUGS (4)
  1. SANDOSTATIN LAR DEPOT [Suspect]
     Active Substance: OCTREOTIDE ACETATE
     Indication: PITUITARY TUMOUR
     Dosage: 30 MG, QMO
     Dates: start: 200807
  2. FLUOXETINE [Concomitant]
     Active Substance: FLUOXETINE\FLUOXETINE HYDROCHLORIDE
     Dosage: 2 DF, QD (10 YEARS AGO)
  3. EUTHYROX [Concomitant]
     Active Substance: LEVOTHYROXINE SODIUM
     Indication: ENDOCRINE DISORDER
     Dosage: 1 DF, QD (15 YEARS AGO)
  4. CEDUR [Concomitant]
     Active Substance: BEZAFIBRATE
     Indication: BLOOD TRIGLYCERIDES ABNORMAL
     Dosage: 1 DF, UNK

REACTIONS (5)
  - Fear of injection [Unknown]
  - Diabetes mellitus [Recovering/Resolving]
  - Needle issue [Unknown]
  - Diarrhoea [Recovered/Resolved]
  - Injection site pain [Unknown]

NARRATIVE: CASE EVENT DATE: 2008
